FAERS Safety Report 20409216 (Version 6)
Quarter: 2023Q1

REPORT INFORMATION
  Report Type: Report from Study
  Country: NL (occurrence: NL)
  Receive Date: 20220201
  Receipt Date: 20230210
  Transmission Date: 20230418
  Serious: Yes (Hospitalization)
  Sender: FDA-Public Use
  Company Number: NL-NOVARTISPH-NVSC2021NL092016

PATIENT
  Age: 76 Year
  Sex: Male
  Weight: 77 kg

DRUGS (7)
  1. MIDOSTAURIN [Suspect]
     Active Substance: MIDOSTAURIN
     Indication: Acute myeloid leukaemia
     Dosage: 100 MG, QD
     Route: 048
     Dates: start: 20210412, end: 20210430
  2. MIDOSTAURIN [Suspect]
     Active Substance: MIDOSTAURIN
     Indication: Myelodysplastic syndrome
     Dosage: 100 MG
     Route: 048
     Dates: start: 20210806, end: 20210827
  3. MIDOSTAURIN [Suspect]
     Active Substance: MIDOSTAURIN
     Dosage: 100 MG
     Route: 048
     Dates: start: 20220108
  4. DECITABINE [Suspect]
     Active Substance: DECITABINE
     Indication: Acute myeloid leukaemia
     Dosage: 39 MG, QD
     Route: 042
     Dates: start: 20210406, end: 20210408
  5. DECITABINE [Suspect]
     Active Substance: DECITABINE
     Indication: Myelodysplastic syndrome
     Dosage: 36 MG
     Route: 042
     Dates: start: 20210802, end: 20210806
  6. DECITABINE [Suspect]
     Active Substance: DECITABINE
     Dosage: 37 MG
     Route: 042
     Dates: start: 20220103
  7. DECITABINE [Suspect]
     Active Substance: DECITABINE
     Dosage: UNK
     Route: 042
     Dates: start: 20220207

REACTIONS (4)
  - Bacteraemia [Recovered/Resolved]
  - Febrile neutropenia [Recovered/Resolved]
  - Febrile neutropenia [Recovered/Resolved]
  - Febrile neutropenia [Recovered/Resolved]

NARRATIVE: CASE EVENT DATE: 20210420
